FAERS Safety Report 9606072 (Version 1)
Quarter: 2013Q4

REPORT INFORMATION
  Report Type: Spontaneous
  Country: US (occurrence: US)
  Receive Date: 20131008
  Receipt Date: 20131008
  Transmission Date: 20140711
  Serious: No
  Sender: FDA-Public Use
  Company Number: US-AMGEN-USASP2013039840

PATIENT
  Age: 55 Year
  Sex: Female

DRUGS (7)
  1. PROLIA [Suspect]
     Indication: OSTEOPOROSIS POSTMENOPAUSAL
     Dosage: UNK
     Dates: start: 201207
  2. FUROSEMIDE [Concomitant]
     Dosage: 1 DAILY
  3. METOPROLOL [Concomitant]
     Dosage: 25 MG, QD
  4. VITAMIN D                          /00107901/ [Concomitant]
  5. OMEGA 3 FISH OIL [Concomitant]
  6. ZYRTEC [Concomitant]
     Indication: HYPERSENSITIVITY
     Dosage: UNK UNK, AS NECESSARY
  7. PREVACID [Concomitant]
     Indication: DYSPEPSIA

REACTIONS (2)
  - Arthralgia [Recovering/Resolving]
  - Musculoskeletal pain [Recovering/Resolving]
